FAERS Safety Report 9222273 (Version 1)
Quarter: 2013Q1

REPORT INFORMATION
  Report Type: Spontaneous
  Country: US (occurrence: US)
  Receive Date: 20120910
  Receipt Date: 20120910
  Transmission Date: 20140127
  Serious: No
  Sender: FDA-Public Use
  Company Number: 1206USA00218

PATIENT
  Age: 76 Year
  Sex: Female

DRUGS (2)
  1. ZIOPTAN (TAFLUPROST) EYE DROPS, SOLUTION, 0.0015% [Suspect]
     Indication: GLAUCOMA
     Route: 047
     Dates: start: 20120530, end: 20120531
  2. PAXIL (PAROXETINE HYDROCHLORIDE) [Concomitant]

REACTIONS (5)
  - Chest discomfort [None]
  - Feeling drunk [None]
  - Paraesthesia [None]
  - Pain in extremity [None]
  - Balance disorder [None]
